FAERS Safety Report 10269143 (Version 1)
Quarter: 2014Q2

REPORT INFORMATION
  Report Type: Spontaneous
  Country: US (occurrence: US)
  Receive Date: 20140630
  Receipt Date: 20140630
  Transmission Date: 20141212
  Serious: No
  Sender: FDA-Public Use
  Company Number: US-GILEAD-2014-0106801

PATIENT
  Sex: Male

DRUGS (4)
  1. SOVALDI [Suspect]
     Indication: CHRONIC HEPATITIS C
     Dosage: 400 MG, BID
     Route: 048
  2. SOVALDI [Suspect]
     Dosage: 400 MG, QD
     Route: 048
     Dates: start: 20140605
  3. PEGASYS [Concomitant]
  4. RIBAVIRIN [Concomitant]

REACTIONS (1)
  - Accidental overdose [Recovered/Resolved]
